FAERS Safety Report 13822138 (Version 1)
Quarter: 2017Q3

REPORT INFORMATION
  Report Type: Spontaneous
  Country: US (occurrence: US)
  Receive Date: 20170801
  Receipt Date: 20170801
  Transmission Date: 20171127
  Serious: Yes (Hospitalization, Other)
  Sender: FDA-Public Use
  Company Number: US-TEVA-792843USA

PATIENT
  Age: 67 Year
  Sex: Female

DRUGS (14)
  1. ENOXAPARIN SODIUM. [Concomitant]
     Active Substance: ENOXAPARIN SODIUM
  2. LOSARTAN POTASSIUM. [Concomitant]
     Active Substance: LOSARTAN POTASSIUM
  3. SUTENT [Concomitant]
     Active Substance: SUNITINIB MALATE
     Indication: HEPATIC CANCER
  4. AMLODIPINE BESILATE [Concomitant]
     Active Substance: AMLODIPINE BESYLATE
  5. ATENOLOL. [Concomitant]
     Active Substance: ATENOLOL
  6. LANTUS SOLOSTAR [Concomitant]
     Active Substance: INSULIN GLARGINE
  7. TYLENOL EXTRA STRENGTH [Concomitant]
     Active Substance: ACETAMINOPHEN
  8. VICTOZA [Concomitant]
     Active Substance: LIRAGLUTIDE
  9. BUPROPION HYDROCHLORIDE. [Concomitant]
     Active Substance: BUPROPION HYDROCHLORIDE
  10. PRAVASTATIN SODIUM. [Concomitant]
     Active Substance: PRAVASTATIN SODIUM
  11. WARFARIN [Suspect]
     Active Substance: WARFARIN
     Route: 065
     Dates: end: 2017
  12. LEVOTHYROXINE SODIUM. [Concomitant]
     Active Substance: LEVOTHYROXINE SODIUM
  13. ENOXAPARIN SODIUM. [Concomitant]
     Active Substance: ENOXAPARIN SODIUM
  14. MULTI-COMPLETE [Concomitant]

REACTIONS (11)
  - Skin exfoliation [Unknown]
  - Puncture site haemorrhage [Unknown]
  - Rash [Unknown]
  - Decreased appetite [Unknown]
  - Rash [Unknown]
  - Impaired healing [Unknown]
  - Mouth haemorrhage [Unknown]
  - Vaginal ulceration [Unknown]
  - Glossodynia [Not Recovered/Not Resolved]
  - Haemorrhage [Unknown]
  - Rectal haemorrhage [Unknown]

NARRATIVE: CASE EVENT DATE: 201706
